FAERS Safety Report 4689078-8 (Version None)
Quarter: 2005Q2

REPORT INFORMATION
  Report Type: 
  Country: None (occurrence: None)
  Receive Date: 20050608
  Receipt Date: 20050314
  Transmission Date: 20051028
  Serious: No
  Sender: FDA-Public Use
  Company Number: 2005-BP-04254BP

PATIENT
  Sex: Female

DRUGS (10)
  1. SPIRIVA [Suspect]
     Indication: CHRONIC OBSTRUCTIVE PULMONARY DISEASE
     Dosage: 18 MCG (18 MCG, QD), IH
     Route: 055
     Dates: start: 20050215, end: 20050221
  2. SPIRIVA [Suspect]
     Dosage: 18 MCG (18 MCG, 1 IN 1 D), IH
     Route: 055
     Dates: start: 20050307
  3. ACTONEL [Concomitant]
  4. ZOCOR [Concomitant]
  5. PENTOXIFYLLINE ER (PENTOXIFYLLINE) [Concomitant]
  6. SYNTHROID [Concomitant]
  7. CATAPRES [Concomitant]
  8. HYDROCODONE APAP (PROCET /USA/) [Concomitant]
  9. FLEXERIL [Concomitant]
  10. TRAMADOL HCL [Concomitant]

REACTIONS (7)
  - COUGH [None]
  - DYSGEUSIA [None]
  - DYSPNOEA [None]
  - INFLUENZA [None]
  - LETHARGY [None]
  - PHARYNGOLARYNGEAL PAIN [None]
  - PYREXIA [None]
